FAERS Safety Report 8221756-6 (Version None)
Quarter: 2012Q1

REPORT INFORMATION
  Report Type: 
  Country: None (occurrence: None)
  Receive Date: 20120320
  Receipt Date: 20120320
  Transmission Date: 20120608
  Serious: Yes (Hospitalization)
  Sender: FDA-Public Use
  Company Number: None

PATIENT
  Age: 59 Year
  Sex: Male
  Weight: 113 kg

DRUGS (1)
  1. PRADAXA [Suspect]
     Dosage: 150MG
     Route: 048
     Dates: start: 20120302, end: 20120317

REACTIONS (2)
  - ENCEPHALOPATHY [None]
  - HEPATIC FUNCTION ABNORMAL [None]
